FAERS Safety Report 17548895 (Version 2)
Quarter: 2020Q2

REPORT INFORMATION
  Report Type: Spontaneous
  Country: DE (occurrence: DE)
  Receive Date: 20200317
  Receipt Date: 20200501
  Transmission Date: 20200713
  Serious: Yes (Death, Life-Threatening, Hospitalization, Other)
  Sender: FDA-Public Use
  Company Number: DE-DRREDDYS-USA/GER/20/0120793

PATIENT
  Age: 60 Year
  Sex: Male

DRUGS (11)
  1. ACICLOVIR [Concomitant]
     Active Substance: ACYCLOVIR
     Indication: INFECTION PROPHYLAXIS
     Dosage: 200 MILLIGRAM DAILY
     Route: 065
  2. PLASMA [Concomitant]
     Active Substance: HUMAN PLASMA
     Indication: PRODUCT USED FOR UNKNOWN INDICATION
     Dosage: 12X PLASMA EXCHANGE
     Route: 065
  3. PLASMA [Concomitant]
     Active Substance: HUMAN PLASMA
     Dosage: 25X PLASMA EXCHANGE
     Route: 065
  4. PLASMA [Concomitant]
     Active Substance: HUMAN PLASMA
     Dosage: 8X PLASMA EXCHANGE
     Route: 065
  5. BORTEZOMIB. [Suspect]
     Active Substance: BORTEZOMIB
     Indication: ENCEPHALITIS AUTOIMMUNE
     Dosage: THREE CYCLES AT A DOSE OF 1-1.3 MG/M2
     Route: 065
  6. PREDNISOLONE. [Suspect]
     Active Substance: PREDNISOLONE
     Indication: ENCEPHALITIS
     Dosage: TAPERING-REGIMEN
     Route: 048
  7. DARATUMUMAB [Suspect]
     Active Substance: DARATUMUMAB
     Indication: ENCEPHALITIS AUTOIMMUNE
     Dosage: FOR A TOTAL OF 13 CYCLES (FIRST 8 CYCLES WEEKLY AND REMAINING CYCLES EVERY 2 WEEKS)
     Route: 041
  8. RITUXIMAB. [Suspect]
     Active Substance: RITUXIMAB
     Indication: ENCEPHALITIS AUTOIMMUNE
     Dosage: CONCENTRATE FOR SOLUTION FOR INFUSION
     Route: 065
  9. PLASMA [Concomitant]
     Active Substance: HUMAN PLASMA
     Dosage: 2X PLASMA EXCHANGE
     Route: 065
  10. IMMUNOGLOBULIN (IMMUNOGLOBULIN HUMAN NORMAL) [Suspect]
     Active Substance: HUMAN IMMUNOGLOBULIN G
     Indication: ENCEPHALITIS AUTOIMMUNE
     Dosage: FOR GREATER THAN 5 MONTHS
     Route: 042
  11. METHYLPREDNISOLONE. [Suspect]
     Active Substance: METHYLPREDNISOLONE
     Indication: ENCEPHALITIS AUTOIMMUNE
     Dosage: 5X500MG
     Route: 065

REACTIONS (17)
  - Bacterial infection [Fatal]
  - Breathing-related sleep disorder [Unknown]
  - Off label use [Fatal]
  - Cerebellar ataxia [Recovering/Resolving]
  - Drug ineffective [Unknown]
  - Neuromyotonia [Recovering/Resolving]
  - Rebound effect [Recovering/Resolving]
  - Encephalitis autoimmune [Recovering/Resolving]
  - Cognitive disorder [Recovering/Resolving]
  - Product use in unapproved indication [Unknown]
  - Urinary tract infection [Unknown]
  - Septic shock [Fatal]
  - Cellulitis [Recovered/Resolved]
  - Condition aggravated [Recovering/Resolving]
  - Infection [Unknown]
  - Aggression [Unknown]
  - Seizure [Recovering/Resolving]

NARRATIVE: CASE EVENT DATE: 2017
